FAERS Safety Report 8446877-4 (Version None)
Quarter: 2012Q2

REPORT INFORMATION
  Report Type: 
  Country: None (occurrence: None)
  Receive Date: 20120613
  Receipt Date: 20120613
  Transmission Date: 20120825
  Serious: Yes (Other)
  Sender: FDA-Public Use
  Company Number: None

PATIENT
  Sex: Female
  Weight: 101.6057 kg

DRUGS (2)
  1. LIOTHYRONINE SODIUM [Suspect]
     Indication: TRI-IODOTHYRONINE FREE DECREASED
     Dosage: 5MG BID PO
     Route: 048
  2. LIOTHYRONINE SODIUM [Suspect]
     Indication: HYPOTHYROIDISM
     Dosage: 5MG BID PO
     Route: 048

REACTIONS (4)
  - PRODUCT SUBSTITUTION ISSUE [None]
  - WEIGHT INCREASED [None]
  - PRODUCT QUALITY ISSUE [None]
  - FATIGUE [None]
